FAERS Safety Report 7096414-4 (Version None)
Quarter: 2010Q4

REPORT INFORMATION
  Report Type: 
  Country: None (occurrence: None)
  Receive Date: 20101111
  Receipt Date: 20101104
  Transmission Date: 20110411
  Serious: Yes (Other)
  Sender: FDA-Public Use
  Company Number: TR-GENZYME-FABR-1001527

PATIENT

DRUGS (3)
  1. FABRAZYME [Suspect]
     Indication: FABRY'S DISEASE
     Dosage: 35 MG, UNK
     Route: 042
     Dates: start: 20100301
  2. FABRAZYME [Suspect]
     Dosage: 75 MG, Q2W
     Route: 042
     Dates: start: 20090128, end: 20100301
  3. NSAID'S [Concomitant]
     Indication: PAIN IN EXTREMITY
     Dosage: UNK

REACTIONS (1)
  - PROTEINURIA [None]
